FAERS Safety Report 9123166 (Version 1)
Quarter: 2013Q1

REPORT INFORMATION
  Report Type: Spontaneous
  Country: US (occurrence: None)
  Receive Date: 20130225
  Receipt Date: 20130225
  Transmission Date: 20140127
  Serious: Yes (Other)
  Sender: FDA-Public Use
  Company Number: None

PATIENT
  Age: 95 Year
  Sex: Female
  Weight: 52.16 kg

DRUGS (1)
  1. TROSPIUM [Suspect]
     Indication: NOCTURIA
     Dosage: 1 CAP AT BEDTIME QD PO
     Route: 048
     Dates: start: 20130116, end: 20130121

REACTIONS (2)
  - Nocturia [None]
  - Product substitution issue [None]
